FAERS Safety Report 21836413 (Version 1)
Quarter: 2023Q1

REPORT INFORMATION
  Report Type: Spontaneous
  Country: CA (occurrence: None)
  Receive Date: 20230109
  Receipt Date: 20230109
  Transmission Date: 20230418
  Serious: Yes (Other)
  Sender: FDA-Public Use
  Company Number: CA-ROCHE-3258176

PATIENT
  Age: 72 Year
  Sex: Male
  Weight: 80 kg

DRUGS (1)
  1. PIRFENIDONE [Suspect]
     Active Substance: PIRFENIDONE
     Indication: Pulmonary fibrosis
     Route: 048

REACTIONS (9)
  - Bronchiectasis [Unknown]
  - COVID-19 [Unknown]
  - Cardiomegaly [Unknown]
  - Interstitial lung disease [Unknown]
  - Lung opacity [Unknown]
  - Lymphadenopathy mediastinal [Unknown]
  - Progressive massive fibrosis [Unknown]
  - Pulmonary arterial hypertension [Unknown]
  - Pulmonary artery dilatation [Unknown]
